FAERS Safety Report 16825833 (Version 1)
Quarter: 2019Q3

REPORT INFORMATION
  Report Type: Spontaneous
  Country: US (occurrence: US)
  Receive Date: 20190919
  Receipt Date: 20190919
  Transmission Date: 20191005
  Serious: No
  Sender: FDA-Public Use
  Company Number: US-GLENMARK PHARMACEUTICALS-2019GMK042373

PATIENT

DRUGS (8)
  1. CICLOPIROX OLAMINE CREAM USP, 0.77% [Suspect]
     Active Substance: CICLOPIROX OLAMINE
     Indication: NEUROPATHY PERIPHERAL
     Dosage: UNK, BID; ONSET DATE: 5-6 YEARS AGO
     Route: 061
  2. METFORMIN [Concomitant]
     Active Substance: METFORMIN HYDROCHLORIDE
     Indication: DIABETES MELLITUS
     Dosage: UNK, BID
     Route: 065
  3. GABAPENTIN. [Concomitant]
     Active Substance: GABAPENTIN
     Indication: DIABETIC NEUROPATHY
     Dosage: UNK, BID
     Route: 048
  4. CICLOPIROX OLAMINE CREAM USP, 0.77% [Suspect]
     Active Substance: CICLOPIROX OLAMINE
     Dosage: UNK, BID
     Route: 061
     Dates: start: 201907
  5. SINGULAIR [Concomitant]
     Active Substance: MONTELUKAST SODIUM
     Indication: HYPERSENSITIVITY
     Dosage: UNK
     Route: 065
  6. VANCOMYCIN HYDROCHLORIDE. [Concomitant]
     Active Substance: VANCOMYCIN HYDROCHLORIDE
     Indication: PRODUCT USED FOR UNKNOWN INDICATION
     Dosage: UNK
     Route: 065
  7. LORATADINE. [Concomitant]
     Active Substance: LORATADINE
     Indication: HYPERSENSITIVITY
     Dosage: UNK
     Route: 065
  8. GABAPENTIN. [Concomitant]
     Active Substance: GABAPENTIN
     Indication: MUSCLE SPASMS

REACTIONS (2)
  - Product use in unapproved indication [Unknown]
  - No adverse event [Unknown]
